FAERS Safety Report 13890508 (Version 1)
Quarter: 2017Q3

REPORT INFORMATION
  Report Type: Spontaneous
  Country: US (occurrence: US)
  Receive Date: 20170822
  Receipt Date: 20170822
  Transmission Date: 20171127
  Serious: No
  Sender: FDA-Public Use
  Company Number: US-009507513-1708USA003727

PATIENT
  Age: 30 Year
  Sex: Female
  Weight: 83.9 kg

DRUGS (1)
  1. NEXPLANON [Suspect]
     Active Substance: ETONOGESTREL
     Indication: CONTRACEPTION
     Dosage: 1/EVERY 3 YEARS
     Route: 059
     Dates: start: 20160826, end: 20170309

REACTIONS (5)
  - Implant site fibrosis [Unknown]
  - Nausea [Recovered/Resolved]
  - Device breakage [Recovered/Resolved]
  - Fatigue [Recovered/Resolved]
  - Vaginal haemorrhage [Recovered/Resolved]

NARRATIVE: CASE EVENT DATE: 2016
